FAERS Safety Report 21104371 (Version 1)
Quarter: 2022Q3

REPORT INFORMATION
  Report Type: Other
  Country: None (occurrence: ES)
  Receive Date: 20220720
  Receipt Date: 20220720
  Transmission Date: 20221026
  Serious: Yes (Hospitalization, Other)
  Sender: FDA-Public Use
  Company Number: ES-ACI HealthCare Limited-2131049

PATIENT
  Age: 13 Year
  Sex: Male

DRUGS (2)
  1. TRAMADOL HYDROCHLORIDE [Suspect]
     Active Substance: TRAMADOL HYDROCHLORIDE
     Indication: Product used for unknown indication
     Route: 065
  2. MORPHINE SULFATE [Suspect]
     Active Substance: MORPHINE SULFATE
     Route: 065

REACTIONS (6)
  - Intentional overdose [Unknown]
  - Toxicity to various agents [Unknown]
  - Amylase increased [Unknown]
  - Troponin I increased [Unknown]
  - Respiratory depression [Recovered/Resolved]
  - Urinary retention [Recovered/Resolved]
